FAERS Safety Report 17839935 (Version 1)
Quarter: 2020Q2

REPORT INFORMATION
  Report Type: Spontaneous
  Country: US (occurrence: US)
  Receive Date: 20200529
  Receipt Date: 20200529
  Transmission Date: 20200714
  Serious: Yes (Other)
  Sender: FDA-Public Use
  Company Number: US-SUN PHARMACEUTICAL INDUSTRIES LTD-2020R1-247866

PATIENT
  Age: 62 Year
  Sex: Male

DRUGS (1)
  1. TRIAMCINOLONE [Suspect]
     Active Substance: TRIAMCINOLONE
     Indication: GRANULOMA
     Dosage: 40 MG/1ML
     Route: 065

REACTIONS (3)
  - Injection site plaque [Unknown]
  - Dysphonia [Unknown]
  - Product residue present [Unknown]
